FAERS Safety Report 7022369-4 (Version None)
Quarter: 2010Q3

REPORT INFORMATION
  Report Type: 
  Country: None (occurrence: None)
  Receive Date: 20100930
  Receipt Date: 20100921
  Transmission Date: 20110219
  Serious: Yes (Other)
  Sender: FDA-Public Use
  Company Number: US-PFIZER INC-2010120017

PATIENT

DRUGS (1)
  1. ZITHROMAX [Suspect]
     Dosage: 500 MG, 4X/DAY
     Route: 048

REACTIONS (1)
  - TINNITUS [None]
